FAERS Safety Report 5825625-8 (Version None)
Quarter: 2008Q3

REPORT INFORMATION
  Report Type: 
  Country: None (occurrence: None)
  Receive Date: 20080729
  Receipt Date: 20080723
  Transmission Date: 20090109
  Serious: Yes (Hospitalization)
  Sender: FDA-Public Use
  Company Number: B0529722A

PATIENT
  Age: 84 Year
  Sex: Male

DRUGS (8)
  1. DILATREND [Suspect]
     Indication: TACHYCARDIA PAROXYSMAL
     Dosage: 25MG PER DAY
     Route: 048
     Dates: start: 20080626, end: 20080701
  2. GLIBOMET [Concomitant]
  3. NORVASC [Concomitant]
  4. ENAPREN [Concomitant]
  5. LASIX [Concomitant]
  6. TICLID [Concomitant]
  7. MONOKET [Concomitant]
  8. PANTORC [Concomitant]

REACTIONS (3)
  - EXTRASYSTOLES [None]
  - SINUS BRADYCARDIA [None]
  - VENTRICULAR EXTRASYSTOLES [None]
